FAERS Safety Report 7644582-5 (Version None)
Quarter: 2011Q3

REPORT INFORMATION
  Report Type: 
  Country: None (occurrence: None)
  Receive Date: 20110729
  Receipt Date: 20110725
  Transmission Date: 20111222
  Serious: Yes (Hospitalization, Other)
  Sender: FDA-Public Use
  Company Number: BR-SANOFI-AVENTIS-2011SA047952

PATIENT
  Sex: Female

DRUGS (10)
  1. LANTUS [Suspect]
     Indication: TYPE 1 DIABETES MELLITUS
     Route: 058
  2. AUTOPEN 24 [Concomitant]
  3. AZATHIOPRINE [Concomitant]
     Route: 048
     Dates: start: 20100926
  4. PROGRAF [Concomitant]
     Route: 048
     Dates: start: 20100926
  5. CLONIDINE HYDROCHLORIDE [Concomitant]
     Route: 048
     Dates: start: 20100926
  6. CIPROFLOXACIN [Concomitant]
     Route: 048
     Dates: start: 20100926
  7. OMEPRAZOLE [Concomitant]
     Route: 048
     Dates: start: 20100926
  8. PREDNISONE [Concomitant]
     Route: 048
     Dates: start: 20100926
  9. INSULINS AND ANALOGUES,FAST-ACTING [Concomitant]
     Dates: start: 20100926
  10. LANTUS [Suspect]
     Route: 058

REACTIONS (5)
  - TREMOR [None]
  - RENAL FAILURE [None]
  - DYSGEUSIA [None]
  - OPEN WOUND [None]
  - HYPERGLYCAEMIA [None]
